FAERS Safety Report 9436978 (Version 1)
Quarter: 2013Q3

REPORT INFORMATION
  Report Type: Spontaneous
  Country: ES (occurrence: ES)
  Receive Date: 20130802
  Receipt Date: 20130802
  Transmission Date: 20140515
  Serious: Yes (Other)
  Sender: FDA-Public Use
  Company Number: ES-AMGEN-ESPSP2013053204

PATIENT
  Sex: Female

DRUGS (2)
  1. PROLIA [Suspect]
     Indication: OSTEOPOROSIS
     Dosage: UNK
     Route: 065
     Dates: start: 20130716
  2. NEURONTIN [Concomitant]

REACTIONS (10)
  - Sciatica [Unknown]
  - Bone pain [Unknown]
  - Feeling abnormal [Unknown]
  - Myalgia [Not Recovered/Not Resolved]
  - Arthralgia [Not Recovered/Not Resolved]
  - Pain [Unknown]
  - Pollakiuria [Unknown]
  - Pruritus [Unknown]
  - Paraesthesia [Unknown]
  - Pain in extremity [Unknown]
